FAERS Safety Report 13393497 (Version 1)
Quarter: 2017Q1

REPORT INFORMATION
  Report Type: Spontaneous
  Country: US (occurrence: US)
  Receive Date: 20170331
  Receipt Date: 20170331
  Transmission Date: 20170429
  Serious: No
  Sender: FDA-Public Use
  Company Number: US-SEPTODONT-201603657

PATIENT
  Age: 49 Year
  Sex: Female

DRUGS (2)
  1. XYLOCAINE 2% WITH EPINEPHRINE 1:100,000 INJECTION [Suspect]
     Active Substance: EPINEPHRINE BITARTRATE\LIDOCAINE HYDROCHLORIDE
     Indication: LOCAL ANAESTHESIA
     Dosage: NERVE BLOCK, LEFT IA BLOCK IN HEALTHY TISSUE WITH 27G 0.4MM X 35MM GIBSON NEEDLE
     Route: 004
     Dates: start: 20160919, end: 20160919
  2. BENZOCAINE. [Concomitant]
     Active Substance: BENZOCAINE
     Dates: start: 20160919, end: 20160919

REACTIONS (3)
  - Stomatitis [Recovered/Resolved]
  - Urticaria [Recovered/Resolved]
  - Swelling [Recovered/Resolved]

NARRATIVE: CASE EVENT DATE: 20160919
